FAERS Safety Report 20010368 (Version 1)
Quarter: 2021Q4

REPORT INFORMATION
  Report Type: Spontaneous
  Country: US (occurrence: US)
  Receive Date: 20211028
  Receipt Date: 20211028
  Transmission Date: 20220303
  Serious: Yes (Other)
  Sender: FDA-Public Use
  Company Number: US-TEVA-2021-US-1968457

PATIENT
  Age: 25 Year
  Sex: Female

DRUGS (2)
  1. MICROGESTIN [Suspect]
     Active Substance: ETHINYL ESTRADIOL\NORETHINDRONE ACETATE
     Dosage: 1 MG / 20 MCG
     Route: 065
     Dates: end: 20211009
  2. MICROGESTIN [Suspect]
     Active Substance: ETHINYL ESTRADIOL\NORETHINDRONE ACETATE
     Dosage: 1 MG / 20 MCG
     Route: 065
     Dates: start: 202110

REACTIONS (1)
  - Haemorrhage [Unknown]
